FAERS Safety Report 18279779 (Version 1)
Quarter: 2020Q3

REPORT INFORMATION
  Report Type: Spontaneous
  Country: FR (occurrence: FR)
  Receive Date: 20200917
  Receipt Date: 20200917
  Transmission Date: 20201103
  Serious: Yes (Hospitalization)
  Sender: FDA-Public Use
  Company Number: FR-MYLANLABS-2020M1078659

PATIENT
  Age: 81 Year
  Sex: Male

DRUGS (12)
  1. RAMIPRIL. [Suspect]
     Active Substance: RAMIPRIL
     Indication: MYOCARDIAL ISCHAEMIA
     Dosage: 1.25 MILLIGRAM, QD
     Route: 048
     Dates: end: 20200307
  2. EUTHYRAL [Concomitant]
     Active Substance: LEVOTHYROXINE SODIUM\LIOTHYRONINE SODIUM
     Dosage: 1 DOSAGE FORM, QD
     Route: 048
  3. VENLAFAXINE [Concomitant]
     Active Substance: VENLAFAXINE HYDROCHLORIDE
     Dosage: 37.5 MILLIGRAM, QD
     Route: 048
  4. VFEND [Suspect]
     Active Substance: VORICONAZOLE
     Indication: ASPERGILLUS INFECTION
     Dosage: 1 DOSAGE FORM, QD
     Route: 048
     Dates: start: 20200224, end: 20200307
  5. KARDEGIC [Concomitant]
     Active Substance: ASPIRIN DL-LYSINE
     Dosage: 1 DOSAGE FORM, QD
     Route: 048
  6. LANSOPRAZOLE. [Concomitant]
     Active Substance: LANSOPRAZOLE
     Route: 048
  7. LASILIX SPECIAL                    /00032601/ [Concomitant]
     Active Substance: FUROSEMIDE
     Dosage: 0.25 DOSAGE FORM, QD
     Route: 048
  8. DUROGESIC [Concomitant]
     Active Substance: FENTANYL
     Dosage: 1 DOSAGE FORM, Q3D
     Route: 062
  9. BISOPROLOL [Concomitant]
     Active Substance: BISOPROLOL
     Dosage: 2.5 MILLIGRAM, QD
     Route: 048
  10. INSULATARD                         /00646002/ [Concomitant]
     Active Substance: INSULIN HUMAN
     Dosage: 20 INTERNATIONAL UNIT, QD
     Route: 058
  11. TANGANIL [Concomitant]
     Active Substance: ACETYLLEUCINE
     Dosage: 3 DOSAGE FORM, QD
     Route: 048
  12. FUROSEMIDE. [Concomitant]
     Active Substance: FUROSEMIDE
     Dosage: 40 MILLIGRAM, QD
     Route: 048

REACTIONS (4)
  - Confusional state [Recovered/Resolved]
  - Acute kidney injury [Recovering/Resolving]
  - Condition aggravated [Recovered/Resolved]
  - Hallucination, visual [Recovered/Resolved]

NARRATIVE: CASE EVENT DATE: 20200306
